FAERS Safety Report 18497872 (Version 2)
Quarter: 2021Q1

REPORT INFORMATION
  Report Type: Spontaneous
  Country: US (occurrence: US)
  Receive Date: 20201112
  Receipt Date: 20210221
  Transmission Date: 20210419
  Serious: No
  Sender: FDA-Public Use
  Company Number: US-THERAPEUTICSMD-2020TMD04713

PATIENT
  Age: 62 Year
  Sex: Female
  Weight: 62.59 kg

DRUGS (4)
  1. NATURAL THYROID [Concomitant]
  2. BIJUVA [Suspect]
     Active Substance: ESTRADIOL\PROGESTERONE
     Indication: BLOOD OESTROGEN DECREASED
     Dosage: 1/100 MG (1 CAPSULE), 1X/DAY IN THE AFTERNOON WITH FOOD
     Route: 048
     Dates: start: 20200914, end: 20201021
  3. UNSPECIFIED TOPICAL HORMONES [Concomitant]
  4. TESTOSTERONE. [Concomitant]
     Active Substance: TESTOSTERONE

REACTIONS (5)
  - Gastrooesophageal reflux disease [Recovering/Resolving]
  - Insomnia [Recovering/Resolving]
  - Off label use [Recovered/Resolved]
  - Product dose omission issue [Recovered/Resolved]
  - Abdominal pain upper [Recovering/Resolving]

NARRATIVE: CASE EVENT DATE: 20201019
